FAERS Safety Report 5333062-8 (Version None)
Quarter: 2007Q2

REPORT INFORMATION
  Report Type: 
  Country: None (occurrence: None)
  Receive Date: 20070306
  Receipt Date: 20060907
  Transmission Date: 20071010
  Serious: Yes (Hospitalization)
  Sender: FDA-Public Use
  Company Number: A03200605608

PATIENT
  Age: 75 Year
  Sex: Male

DRUGS (5)
  1. PLAVIX [Suspect]
     Indication: ANGIOPLASTY
     Dosage: 300 MG LOADING DOSE FOLLOWED BY 75 MG QD, THEREAFTER - ORAL
     Route: 048
     Dates: start: 20060831
  2. PLAVIX [Suspect]
     Indication: STENT PLACEMENT
     Dosage: 300 MG LOADING DOSE FOLLOWED BY 75 MG QD, THEREAFTER - ORAL
     Route: 048
     Dates: start: 20060831
  3. ATORVASTATIN [Concomitant]
  4. ACETYLSALICYLIC ACID SRT [Concomitant]
  5. ATENOLOL [Concomitant]

REACTIONS (2)
  - MYOCARDIAL INFARCTION [None]
  - THROMBOSIS IN DEVICE [None]
